FAERS Safety Report 8677907 (Version 3)
Quarter: 2012Q4

REPORT INFORMATION
  Report Type: 
  Country: JP (occurrence: JP)
  Receive Date: 20120723
  Receipt Date: 20120924
  Transmission Date: 20130627
  Serious: Yes (Hospitalization)
  Sender: FDA-Public Use
  Company Number: JP-ROCHE-1087890

PATIENT
  Age: 81 Year
  Sex: Female
  Weight: 46 kg

DRUGS (11)
  1. ACTEMRA [Suspect]
     Indication: RHEUMATOID ARTHRITIS
     Route: 041
     Dates: start: 20091124, end: 201206
  2. AZULFIDINE-EN [Concomitant]
     Indication: RHEUMATOID ARTHRITIS
     Route: 048
     Dates: end: 20110707
  3. RIMATIL [Concomitant]
     Indication: RHEUMATOID ARTHRITIS
     Route: 048
     Dates: end: 20091210
  4. PROGRAF [Concomitant]
     Indication: RHEUMATOID ARTHRITIS
     Route: 048
     Dates: end: 20100609
  5. PROGRAF [Concomitant]
     Indication: RHEUMATOID ARTHRITIS
     Route: 048
     Dates: start: 20100610
  6. PREDNISOLONE [Concomitant]
     Indication: RHEUMATOID ARTHRITIS
     Route: 048
     Dates: end: 20100513
  7. TAKEPRON [Concomitant]
     Indication: PROPHYLAXIS AGAINST GASTROINTESTINAL ULCER
     Route: 048
  8. SALAGEN [Concomitant]
     Indication: SJOGREN^S SYNDROME
     Route: 048
     Dates: start: 20091117
  9. BONOTEO [Concomitant]
     Indication: OSTEOPOROSIS PROPHYLAXIS
     Dosage: Dosage is uncertain.
     Route: 048
  10. EDIROL [Concomitant]
     Indication: OSTEOPOROSIS PROPHYLAXIS
     Route: 048
     Dates: start: 20120419
  11. CADUET [Concomitant]
     Indication: HYPERTENSION
     Route: 048
     Dates: start: 20110215

REACTIONS (1)
  - Pancreatitis acute [Recovering/Resolving]
